FAERS Safety Report 26188320 (Version 1)
Quarter: 2025Q4

REPORT INFORMATION
  Report Type: Report from Study
  Country: US (occurrence: US)
  Receive Date: 20251222
  Receipt Date: 20251222
  Transmission Date: 20260117
  Serious: Yes (Hospitalization)
  Sender: BAUSCH AND LOMB
  Company Number: US-BAUSCH-BL-2025-000874

PATIENT
  Age: 81 Year
  Sex: Male

DRUGS (7)
  1. XIFAXAN [Suspect]
     Active Substance: RIFAXIMIN
     Indication: Hepatic encephalopathy
     Dosage: TAKE 1 TABLET (550 MG) BY ORAL ROUTE 2 TIMES PER DAY
     Route: 048
  2. SPIRONOLACTONE [Concomitant]
     Active Substance: SPIRONOLACTONE
     Indication: Ascites
     Dosage: TAKE 1 TABLET (50 MG) BY ORAL ROUTE ONCE DAILY
     Route: 048
  3. FUROSEMIDE [Concomitant]
     Active Substance: FUROSEMIDE
     Indication: Ascites
     Dosage: TAKE 1 TABLET (20 MG) BY ORAL ROUTE ONCE DAILY
     Route: 048
  4. LACTULOSE [Concomitant]
     Active Substance: LACTULOSE
     Indication: Hepatic encephalopathy
     Dosage: 10 GRAM/15 ML ORAL SOLUTION TAKE 40 ML BY ORAL ROUTE ONCE DAILY
     Route: 048
  5. PROPRANOLOL [Concomitant]
     Active Substance: PROPRANOLOL HYDROCHLORIDE
     Indication: Portal hypertension
     Dosage: TAKE 1 TABLET (10 MG) TWICE DAILY BY ORAL ROUTE
     Route: 048
  6. CIPRO [Concomitant]
     Active Substance: CIPROFLOXACIN HYDROCHLORIDE
     Indication: Spontaneous bacterial peritonitis
     Dosage: TAKE 1 TABLET (500 MG) BY ORAL ROUTE ONCE DAILY
     Route: 048
  7. PANTOPRAZOLE [Concomitant]
     Active Substance: PANTOPRAZOLE
     Indication: Product used for unknown indication
     Dosage: DELAYED RELEASE ENTERIC COATED
     Route: 048

REACTIONS (12)
  - Gait inability [Unknown]
  - Feeding disorder [Unknown]
  - Nausea [Unknown]
  - Vomiting [Unknown]
  - Weight decreased [Unknown]
  - Tenderness [Unknown]
  - Blood pressure systolic increased [Unknown]
  - Blood creatinine increased [Unknown]
  - Glomerular filtration rate decreased [Unknown]
  - Skin discolouration [Unknown]
  - Loss of personal independence in daily activities [Unknown]
  - Product use issue [Unknown]

NARRATIVE: CASE EVENT DATE: 20250101
